FAERS Safety Report 25337895 (Version 1)
Quarter: 2025Q2

REPORT INFORMATION
  Report Type: Spontaneous
  Country: NL (occurrence: NL)
  Receive Date: 20250520
  Receipt Date: 20250520
  Transmission Date: 20250717
  Serious: Yes (Death)
  Sender: MYLAN
  Company Number: NL-LABORATORIOS LICONSA S.A.-2504NL03474

PATIENT
  Age: 22 Year
  Sex: Male

DRUGS (32)
  1. XANAX [Suspect]
     Active Substance: ALPRAZOLAM
     Indication: Product used for unknown indication
  2. XANAX [Suspect]
     Active Substance: ALPRAZOLAM
     Route: 065
  3. XANAX [Suspect]
     Active Substance: ALPRAZOLAM
     Route: 065
  4. XANAX [Suspect]
     Active Substance: ALPRAZOLAM
  5. OMEPRAZOLE [Suspect]
     Active Substance: OMEPRAZOLE
     Indication: Product used for unknown indication
  6. OMEPRAZOLE [Suspect]
     Active Substance: OMEPRAZOLE
     Route: 065
  7. OMEPRAZOLE [Suspect]
     Active Substance: OMEPRAZOLE
     Route: 065
  8. OMEPRAZOLE [Suspect]
     Active Substance: OMEPRAZOLE
  9. CITALOPRAM [Suspect]
     Active Substance: CITALOPRAM
     Indication: Product used for unknown indication
  10. CITALOPRAM [Suspect]
     Active Substance: CITALOPRAM
     Route: 065
  11. CITALOPRAM [Suspect]
     Active Substance: CITALOPRAM
     Route: 065
  12. CITALOPRAM [Suspect]
     Active Substance: CITALOPRAM
  13. MIRTAZAPINE [Suspect]
     Active Substance: MIRTAZAPINE
     Indication: Product used for unknown indication
  14. MIRTAZAPINE [Suspect]
     Active Substance: MIRTAZAPINE
     Route: 065
  15. MIRTAZAPINE [Suspect]
     Active Substance: MIRTAZAPINE
     Route: 065
  16. MIRTAZAPINE [Suspect]
     Active Substance: MIRTAZAPINE
  17. TRAMADOL [Suspect]
     Active Substance: TRAMADOL
     Indication: Product used for unknown indication
  18. TRAMADOL [Suspect]
     Active Substance: TRAMADOL
     Route: 065
  19. TRAMADOL [Suspect]
     Active Substance: TRAMADOL
     Route: 065
  20. TRAMADOL [Suspect]
     Active Substance: TRAMADOL
  21. RIZATRIPTAN [Suspect]
     Active Substance: RIZATRIPTAN
     Indication: Product used for unknown indication
  22. RIZATRIPTAN [Suspect]
     Active Substance: RIZATRIPTAN
     Route: 065
  23. RIZATRIPTAN [Suspect]
     Active Substance: RIZATRIPTAN
     Route: 065
  24. RIZATRIPTAN [Suspect]
     Active Substance: RIZATRIPTAN
  25. SUMATRIPTAN [Suspect]
     Active Substance: SUMATRIPTAN
     Indication: Product used for unknown indication
  26. SUMATRIPTAN [Suspect]
     Active Substance: SUMATRIPTAN
     Route: 065
  27. SUMATRIPTAN [Suspect]
     Active Substance: SUMATRIPTAN
     Route: 065
  28. SUMATRIPTAN [Suspect]
     Active Substance: SUMATRIPTAN
  29. METOCLOPRAMIDE [Suspect]
     Active Substance: METOCLOPRAMIDE
     Indication: Product used for unknown indication
  30. METOCLOPRAMIDE [Suspect]
     Active Substance: METOCLOPRAMIDE
     Route: 065
  31. METOCLOPRAMIDE [Suspect]
     Active Substance: METOCLOPRAMIDE
     Route: 065
  32. METOCLOPRAMIDE [Suspect]
     Active Substance: METOCLOPRAMIDE

REACTIONS (1)
  - Death [Fatal]

NARRATIVE: CASE EVENT DATE: 20230101
